FAERS Safety Report 5735805-8 (Version None)
Quarter: 2008Q2

REPORT INFORMATION
  Report Type: 
  Country: None (occurrence: None)
  Receive Date: 20080508
  Receipt Date: 20080508
  Transmission Date: 20081010
  Serious: No
  Sender: FDA-Public Use
  Company Number: None

PATIENT
  Age: 32 Year
  Sex: Female
  Weight: 63.5036 kg

DRUGS (1)
  1. CREST PRO HEALTH CREST [Suspect]
     Indication: DENTAL CARE
     Dosage: ONE CUP DAILY DENTAL
     Route: 004
     Dates: start: 20080201, end: 20080301

REACTIONS (1)
  - TOOTH DISCOLOURATION [None]
